FAERS Safety Report 24642381 (Version 2)
Quarter: 2024Q4

REPORT INFORMATION
  Report Type: Report from Study
  Country: US (occurrence: US)
  Receive Date: 20241120
  Receipt Date: 20241206
  Transmission Date: 20250114
  Serious: Yes (Other)
  Sender: ABBVIE
  Company Number: US-ABBVIE-5986679

PATIENT
  Age: 83 Year
  Sex: Female

DRUGS (1)
  1. RINVOQ [Suspect]
     Active Substance: UPADACITINIB
     Indication: Dermatitis atopic
     Route: 048
     Dates: start: 202403

REACTIONS (11)
  - Living in residential institution [Unknown]
  - Restless legs syndrome [Unknown]
  - Fatigue [Unknown]
  - Gait disturbance [Unknown]
  - Poor quality sleep [Unknown]
  - Pruritus [Unknown]
  - Headache [Unknown]
  - Vertigo [Unknown]
  - Labyrinthitis [Unknown]
  - Dyspnoea [Unknown]
  - Somnolence [Unknown]

NARRATIVE: CASE EVENT DATE: 20240101
